FAERS Safety Report 8100626-8 (Version None)
Quarter: 2012Q1

REPORT INFORMATION
  Report Type: 
  Country: None (occurrence: None)
  Receive Date: 20120131
  Receipt Date: 20120127
  Transmission Date: 20120608
  Serious: Yes (Hospitalization)
  Sender: FDA-Public Use
  Company Number: GB-AMGEN-GBRCT2012000286

PATIENT
  Age: 88 Year
  Sex: Female

DRUGS (12)
  1. CLOPIDOGREL [Concomitant]
     Dosage: 15 MG, QD
  2. BUMETANIDE [Concomitant]
     Dosage: UNK UNK, QD
  3. BISOPROLOL [Concomitant]
     Dosage: UNK UNK, QD
  4. BLINDED DARBEPOETIN ALFA [Suspect]
     Indication: CARDIAC FAILURE
     Dosage: UNK UNK, Q4WK
     Route: 058
     Dates: start: 20100729
  5. LANSOPRAZOLE [Concomitant]
     Dosage: UNK UNK, QD
  6. FERROUS SULFATE TAB [Concomitant]
     Dosage: 200 G, QD
  7. AMITRIPTYLINE HCL [Concomitant]
  8. BLINDED PLACEBO [Suspect]
     Indication: CARDIAC FAILURE
     Dosage: UNK UNK, Q4WK
     Route: 058
     Dates: start: 20100729
  9. CANDESARTAN CILEXETIL [Concomitant]
     Dosage: 32 MG, QD
  10. DIGOXIN [Concomitant]
     Dosage: 62.5 MUG, UNK
  11. BLINDED DARBEPOETIN ALFA [Suspect]
     Dosage: UNK UNK, Q4WK
     Route: 058
     Dates: start: 20100729
  12. ALLOPURINOL [Concomitant]
     Dosage: UNK UNK, QD

REACTIONS (1)
  - URINARY TRACT INFECTION [None]
